FAERS Safety Report 9009788 (Version 2)
Quarter: 2013Q1

REPORT INFORMATION
  Report Type: Report from Study
  Country: CA (occurrence: CA)
  Receive Date: 20130110
  Receipt Date: 20130319
  Transmission Date: 20140127
  Serious: Yes (Hospitalization)
  Sender: FDA-Public Use
  Company Number: CA-JNJFOC-20130102141

PATIENT
  Sex: Male
  Weight: 62 kg

DRUGS (3)
  1. REMICADE [Suspect]
     Indication: CROHN^S DISEASE
     Route: 042
     Dates: start: 2008
  2. METRONIDAZOLE [Concomitant]
     Route: 065
  3. CIPROFLOXACIN [Concomitant]
     Route: 065

REACTIONS (1)
  - Bone abscess [Unknown]
